FAERS Safety Report 18271556 (Version 1)
Quarter: 2020Q3

REPORT INFORMATION
  Report Type: Spontaneous
  Country: CN (occurrence: CN)
  Receive Date: 20200916
  Receipt Date: 20200916
  Transmission Date: 20201103
  Serious: Yes (Other)
  Sender: FDA-Public Use
  Company Number: CN-ROCHE-2675301

PATIENT
  Age: 69 Year
  Sex: Female

DRUGS (6)
  1. TRASTUZUMAB EMTANSINE [Suspect]
     Active Substance: ADO-TRASTUZUMAB EMTANSINE
     Indication: HORMONE RECEPTOR POSITIVE BREAST CANCER
     Route: 065
     Dates: start: 20200717
  2. LAPATINIB [Concomitant]
     Active Substance: LAPATINIB
     Route: 065
     Dates: start: 20190524
  3. NERATINIB [Concomitant]
     Active Substance: NERATINIB
     Route: 065
     Dates: start: 20200120
  4. PERTUZUMAB. [Suspect]
     Active Substance: PERTUZUMAB
     Indication: CANCER SURGERY
     Route: 065
     Dates: start: 20171115
  5. TRASTUZUMAB. [Suspect]
     Active Substance: TRASTUZUMAB
     Indication: HORMONE RECEPTOR POSITIVE BREAST CANCER
     Route: 065
     Dates: start: 20171115
  6. PYROTINIB [Concomitant]
     Active Substance: PYROTINIB
     Route: 065
     Dates: start: 20190831

REACTIONS (4)
  - White blood cell count decreased [Recovering/Resolving]
  - Platelet count decreased [Recovering/Resolving]
  - Hepatic function abnormal [Recovering/Resolving]
  - Haemoglobin decreased [Recovering/Resolving]

NARRATIVE: CASE EVENT DATE: 2020
